FAERS Safety Report 8286435-8 (Version None)
Quarter: 2012Q2

REPORT INFORMATION
  Report Type: 
  Country: None (occurrence: None)
  Receive Date: 20120416
  Receipt Date: 20120403
  Transmission Date: 20120825
  Serious: Yes (Other)
  Sender: FDA-Public Use
  Company Number: BR-JNJFOC-20120401963

PATIENT
  Sex: Female
  Weight: 50.3 kg

DRUGS (5)
  1. SULFASALAZINE [Concomitant]
     Route: 065
  2. AZATHIOPRINE [Concomitant]
     Route: 065
  3. REMICADE [Suspect]
     Indication: COLITIS ULCERATIVE
     Route: 042
     Dates: start: 20120330, end: 20120330
  4. OMEPRAZOLE [Concomitant]
     Route: 065
  5. FOLIC ACID [Concomitant]
     Route: 065

REACTIONS (3)
  - INFUSION RELATED REACTION [None]
  - CHILLS [None]
  - DYSPNOEA [None]
